FAERS Safety Report 7299678-7 (Version None)
Quarter: 2011Q1

REPORT INFORMATION
  Report Type: 
  Country: None (occurrence: None)
  Receive Date: 20110217
  Receipt Date: 20110209
  Transmission Date: 20110831
  Serious: Yes (Other)
  Sender: FDA-Public Use
  Company Number: US-PURDUE-USA-2010-0054295

PATIENT
  Age: 56 Year
  Sex: Male
  Weight: 126.98 kg

DRUGS (9)
  1. OXYCONTIN [Suspect]
     Indication: BACK PAIN
     Dosage: 40 MG, SEE TEXT
  2. SPIRIVA [Concomitant]
     Indication: PRODUCT USED FOR UNKNOWN INDICATION
     Route: 055
  3. OXYCONTIN [Suspect]
     Indication: ARTHRALGIA
  4. LOVASTATIN [Concomitant]
     Indication: PRODUCT USED FOR UNKNOWN INDICATION
     Dosage: 40 MG, UNK
  5. GLYBURIDE [Concomitant]
     Indication: PRODUCT USED FOR UNKNOWN INDICATION
     Dosage: 5 MG, UNK
  6. PROAIR HFA [Concomitant]
     Indication: PRODUCT USED FOR UNKNOWN INDICATION
     Route: 055
  7. SINGULAIR [Concomitant]
     Indication: PRODUCT USED FOR UNKNOWN INDICATION
     Dosage: 10 MG, UNK
  8. OXYCONTIN [Suspect]
     Indication: PAIN IN EXTREMITY
  9. TEMAZEPAM [Concomitant]
     Indication: PRODUCT USED FOR UNKNOWN INDICATION
     Dosage: 30 MG, UNK

REACTIONS (7)
  - DYSPNOEA [None]
  - THROAT TIGHTNESS [None]
  - PHARYNGEAL OEDEMA [None]
  - PRODUCT QUALITY ISSUE [None]
  - INADEQUATE ANALGESIA [None]
  - MEDICATION RESIDUE [None]
  - DRUG INEFFECTIVE [None]
